FAERS Safety Report 9641190 (Version 2)
Quarter: 2013Q4

REPORT INFORMATION
  Report Type: Spontaneous
  Country: AR (occurrence: AR)
  Receive Date: 20131023
  Receipt Date: 20131031
  Transmission Date: 20140711
  Serious: Yes (Hospitalization)
  Sender: FDA-Public Use
  Company Number: AR-PFIZER INC-2013300269

PATIENT
  Age: 17 Year
  Sex: Male

DRUGS (2)
  1. SIROLIMUS [Suspect]
     Indication: INTESTINAL TRANSPLANT
     Dosage: 1 MG, 1X/DAY
     Route: 048
     Dates: start: 20130628, end: 20131004
  2. HEPARIN [Concomitant]

REACTIONS (2)
  - Off label use [Unknown]
  - Cytomegalovirus infection [Recovered/Resolved]
